FAERS Safety Report 16811990 (Version 1)
Quarter: 2019Q3

REPORT INFORMATION
  Report Type: Spontaneous
  Country: CN (occurrence: CN)
  Receive Date: 20190916
  Receipt Date: 20190916
  Transmission Date: 20191005
  Serious: Yes (Life-Threatening)
  Sender: FDA-Public Use
  Company Number: CN-FRESENIUS KABI-FK201910151

PATIENT
  Sex: Male

DRUGS (7)
  1. SORBITOL/GLYCINE/ALANINE/SERINE/ASPARTIC ACID/CYSTINE/TYROSINE/LEUCINE/METHIONINE/PHENYLALANINE/HIST (COMPOUND AMINO ACID 18AA) [Suspect]
     Active Substance: AMINO ACIDS
     Indication: MALNUTRITION
     Dosage: 250ML QD
     Route: 041
     Dates: start: 20190806, end: 20190806
  2. POTASSIUM CHLORIDE. [Concomitant]
     Active Substance: POTASSIUM CHLORIDE
     Indication: MALNUTRITION
     Dosage: 2G QD
     Route: 041
     Dates: start: 20190806, end: 20190806
  3. INSULIN [Concomitant]
     Active Substance: INSULIN NOS
     Indication: MALNUTRITION
     Dosage: 12UNIT
     Route: 041
     Dates: start: 20190806, end: 20190806
  4. LIPOVENOES MCT 20% [Suspect]
     Active Substance: EGG PHOSPHOLIPIDS\GLYCERIN\MEDIUM-CHAIN TRIGLYCERIDES\SOYBEAN OIL
     Indication: MALNUTRITION
     Dosage: 250ML, QD
     Route: 041
     Dates: start: 20190806, end: 20190806
  5. GLYCINE/PYRIDOXINE HYDROCHLORIDE/BIOTIN/FOLIC ACID/CYANOCOBALAMIN/NICOTINAMIDE/RIBOFLAVIN SODIUM PHO [Concomitant]
     Indication: MALNUTRITION
     Dosage: 2 BOTTLE QD
     Route: 041
     Dates: start: 20190806, end: 20190806
  6. GLUCOSE INJECTION [Concomitant]
     Active Substance: DEXTROSE
     Indication: MALNUTRITION
     Dosage: 5 PERCENT 250ML QD
     Route: 041
     Dates: start: 20190806, end: 20190806
  7. ERGOCALCIFEROL/RETINOL/PHYTOMENADIONE/VITAMIN E NOS [Concomitant]
     Indication: MALNUTRITION
     Dosage: 1 BOTTLE
     Route: 041
     Dates: start: 20190806, end: 20190806

REACTIONS (5)
  - Chills [Recovering/Resolving]
  - Dyspnoea [Recovering/Resolving]
  - Hypoxia [Recovering/Resolving]
  - Pyrexia [Recovering/Resolving]
  - Sputum retention [Recovering/Resolving]

NARRATIVE: CASE EVENT DATE: 20190806
